FAERS Safety Report 8727844 (Version 3)
Quarter: 2014Q1

REPORT INFORMATION
  Report Type: Spontaneous
  Country: US (occurrence: US)
  Receive Date: 20120816
  Receipt Date: 20140311
  Transmission Date: 20141002
  Serious: Yes (Other)
  Sender: FDA-Public Use
  Company Number: US-AMGEN-USASP2012044873

PATIENT
  Age: 30 Year
  Sex: Female
  Weight: 134.2 kg

DRUGS (3)
  1. NPLATE [Suspect]
     Indication: THROMBOCYTOPENIC PURPURA
     Dosage: 250 MUG, QWK
     Route: 065
     Dates: start: 20120121, end: 20120202
  2. PREDNISONE [Concomitant]
     Dosage: UNK
     Route: 065
  3. IMMUNOGLOBULIN I.V [Concomitant]
     Dosage: UNK
     Route: 042

REACTIONS (4)
  - Haemorrhage intracranial [Unknown]
  - Drug ineffective [Not Recovered/Not Resolved]
  - Incorrect route of drug administration [Recovered/Resolved]
  - Neuropathy peripheral [Unknown]
